FAERS Safety Report 5632346-3 (Version None)
Quarter: 2008Q1

REPORT INFORMATION
  Report Type: 
  Country: None (occurrence: None)
  Receive Date: 20080220
  Receipt Date: 20080208
  Transmission Date: 20080703
  Serious: Yes (Death, Hospitalization)
  Sender: FDA-Public Use
  Company Number: GB-ELI_LILLY_AND_COMPANY-GB200706000486

PATIENT
  Sex: Female
  Weight: 63.3 kg

DRUGS (4)
  1. CYMBALTA [Suspect]
     Dosage: 30 - 60 MG, UNK
     Route: 065
     Dates: start: 20070118
  2. ZISPIN [Concomitant]
     Indication: DEPRESSION
     Dosage: UNK, UNKNOWN
     Route: 065
     Dates: start: 20060101
  3. TEMAZEPAM [Concomitant]
     Dosage: UNK, UNKNOWN
     Route: 065
     Dates: start: 20060101
  4. EFFEXOR [Concomitant]
     Indication: DEPRESSION
     Dosage: UNK, UNKNOWN
     Route: 065
     Dates: start: 20060101, end: 20070117

REACTIONS (1)
  - SUBARACHNOID HAEMORRHAGE [None]
